FAERS Safety Report 9708155 (Version 2)
Quarter: 2013Q4

REPORT INFORMATION
  Report Type: Spontaneous
  Country: FR (occurrence: FR)
  Receive Date: 20131125
  Receipt Date: 20131125
  Transmission Date: 20140711
  Serious: Yes (Other)
  Sender: FDA-Public Use
  Company Number: FR-SA-POMP-1001124

PATIENT
  Age: 5 Year
  Sex: Male
  Weight: 15.7 kg

DRUGS (2)
  1. ALGLUCOSIDASE ALFA [Suspect]
     Indication: GLYCOGEN STORAGE DISEASE TYPE II
     Dosage: 450 MG, Q2W
     Route: 042
     Dates: start: 20060310
  2. TENORMINE [Suspect]
     Indication: PRODUCT USED FOR UNKNOWN INDICATION
     Route: 048

REACTIONS (1)
  - Pericarditis [Recovered/Resolved]
